FAERS Safety Report 9816164 (Version 2)
Quarter: 2014Q1

REPORT INFORMATION
  Report Type: Spontaneous
  Country: ES (occurrence: ES)
  Receive Date: 20140114
  Receipt Date: 20140221
  Transmission Date: 20141002
  Serious: Yes (Other)
  Sender: FDA-Public Use
  Company Number: ES-AMGEN-ESPSP2014001539

PATIENT
  Age: 48 Year
  Sex: Male

DRUGS (1)
  1. NPLATE [Suspect]
     Indication: IMMUNE THROMBOCYTOPENIC PURPURA
     Dosage: 5 MG/KG, UNK
     Route: 065

REACTIONS (5)
  - Therapeutic response decreased [Not Recovered/Not Resolved]
  - Platelet count decreased [Unknown]
  - Blood lactate dehydrogenase increased [Unknown]
  - Herpes simplex serology positive [Unknown]
  - Vitamin D deficiency [Unknown]
